FAERS Safety Report 22089596 (Version 1)
Quarter: 2023Q1

REPORT INFORMATION
  Report Type: Spontaneous
  Country: US (occurrence: None)
  Receive Date: 20230312
  Receipt Date: 20230312
  Transmission Date: 20230417
  Serious: Yes (Other)
  Sender: FDA-Public Use
  Company Number: None

PATIENT
  Age: 66 Year
  Sex: Female
  Weight: 99 kg

DRUGS (2)
  1. FASLODEX [Suspect]
     Active Substance: FULVESTRANT
     Indication: Breast cancer
     Dosage: OTHER QUANTITY : 500 INJECTION(S);?OTHER FREQUENCY : ONCE A MONTH;?
     Route: 030
  2. milk thistle [Concomitant]

REACTIONS (2)
  - Abdominal pain [None]
  - Non-alcoholic fatty liver [None]

NARRATIVE: CASE EVENT DATE: 20221228
